FAERS Safety Report 21298632 (Version 1)
Quarter: 2022Q3

REPORT INFORMATION
  Report Type: Spontaneous
  Country: IT (occurrence: IT)
  Receive Date: 20220906
  Receipt Date: 20220906
  Transmission Date: 20221026
  Serious: Yes (Other)
  Sender: FDA-Public Use
  Company Number: None

PATIENT
  Age: 33 Year
  Sex: Female
  Weight: 67 kg

DRUGS (1)
  1. CELEBREX [Suspect]
     Active Substance: CELECOXIB
     Indication: Axial spondyloarthritis
     Route: 048
     Dates: start: 202109, end: 202207

REACTIONS (4)
  - Otitis media acute [Recovered/Resolved with Sequelae]
  - Rhinorrhoea [Not Recovered/Not Resolved]
  - Acute sinusitis [Not Recovered/Not Resolved]
  - Nasal turbinate hypertrophy [Recovering/Resolving]

NARRATIVE: CASE EVENT DATE: 20211001
